FAERS Safety Report 7723490-5 (Version None)
Quarter: 2011Q3

REPORT INFORMATION
  Report Type: 
  Country: None (occurrence: None)
  Receive Date: 20110901
  Receipt Date: 20110830
  Transmission Date: 20111222
  Serious: No
  Sender: FDA-Public Use
  Company Number: US-PFIZER INC-2011203494

PATIENT
  Sex: Female
  Weight: 64.399 kg

DRUGS (3)
  1. MULTIVITAMIN [Concomitant]
     Indication: EYE DISORDER
     Dosage: 50 MG DAILY
  2. MULTI-VITAMINS [Concomitant]
     Dosage: UNK
  3. CHANTIX [Suspect]
     Indication: SMOKING CESSATION THERAPY
     Dosage: 1 MG DAILY
     Route: 048
     Dates: start: 20080101, end: 20080101

REACTIONS (1)
  - DIZZINESS [None]
